FAERS Safety Report 6542432-1 (Version None)
Quarter: 2010Q1

REPORT INFORMATION
  Report Type: 
  Country: None (occurrence: None)
  Receive Date: 20100114
  Receipt Date: 20100114
  Transmission Date: 20100710
  Serious: No
  Sender: FDA-Public Use
  Company Number: None

PATIENT
  Sex: Male
  Weight: 147.8726 kg

DRUGS (1)
  1. METFORMIN HCL [Suspect]
     Indication: TYPE 1 DIABETES MELLITUS
     Dosage: 500MG TWO BID ORAL
     Route: 048
     Dates: start: 20070101

REACTIONS (2)
  - BLOOD GLUCOSE INCREASED [None]
  - DIARRHOEA [None]
